FAERS Safety Report 14150225 (Version 1)
Quarter: 2017Q4

REPORT INFORMATION
  Report Type: Spontaneous
  Country: US (occurrence: US)
  Receive Date: 20171101
  Receipt Date: 20171101
  Transmission Date: 20180321
  Serious: No
  Sender: FDA-Public Use
  Company Number: US-NOVOPROD-511668

PATIENT
  Age: 69 Year
  Sex: Female

DRUGS (2)
  1. VAGIFEM [Suspect]
     Active Substance: ESTRADIOL
     Indication: MENOPAUSE
     Dosage: UNK
     Route: 067
     Dates: start: 20160906, end: 2016
  2. VAGIFEM [Suspect]
     Active Substance: ESTRADIOL
     Indication: BLOOD OESTROGEN

REACTIONS (2)
  - Palpitations [Recovered/Resolved]
  - Muscle spasms [Recovered/Resolved]

NARRATIVE: CASE EVENT DATE: 20160907
